FAERS Safety Report 16353006 (Version 3)
Quarter: 2019Q3

REPORT INFORMATION
  Report Type: Spontaneous
  Country: US (occurrence: US)
  Receive Date: 20190524
  Receipt Date: 20190923
  Transmission Date: 20191004
  Serious: Yes (Disabling, Other)
  Sender: FDA-Public Use
  Company Number: US-PFIZER INC-2019218445

PATIENT
  Age: 58 Year

DRUGS (1)
  1. TIKOSYN [Suspect]
     Active Substance: DOFETILIDE
     Dosage: 500 UG, DAILY (QUANTITY FOR 90 DAYS: 180)

REACTIONS (1)
  - Cerebrovascular accident [Unknown]
